FAERS Safety Report 25938186 (Version 1)
Quarter: 2025Q4

REPORT INFORMATION
  Report Type: Spontaneous
  Country: US (occurrence: US)
  Receive Date: 20251018
  Receipt Date: 20251018
  Transmission Date: 20260119
  Serious: No
  Sender: ALEXION PHARMACEUTICALS
  Company Number: US-ASTRAZENECA-202510NAM012530US

PATIENT
  Sex: Female
  Weight: 81.82 kg

DRUGS (3)
  1. LYNPARZA [Suspect]
     Active Substance: OLAPARIB
  2. DUPIXENT [Suspect]
     Active Substance: DUPILUMAB
     Route: 065
  3. OXYCODONE [Suspect]
     Active Substance: OXYCODONE
     Route: 065

REACTIONS (8)
  - Nausea [Unknown]
  - Decreased appetite [Unknown]
  - Fatigue [Unknown]
  - Back pain [Unknown]
  - Pruritus [Unknown]
  - Drug hypersensitivity [Unknown]
  - Dermatitis contact [Unknown]
  - Pain [Unknown]
